FAERS Safety Report 19932453 (Version 1)
Quarter: 2021Q4

REPORT INFORMATION
  Report Type: Spontaneous
  Country: US (occurrence: US)
  Receive Date: 20211007
  Receipt Date: 20211007
  Transmission Date: 20220303
  Serious: Yes (Other)
  Sender: FDA-Public Use
  Company Number: None

PATIENT
  Age: 42 Year
  Sex: Female
  Weight: 65.32 kg

DRUGS (2)
  1. REGEN-COV [Suspect]
     Active Substance: CASIRIVIMAB\IMDEVIMAB
     Dates: start: 20211007, end: 20211007
  2. REGEN-COV [Concomitant]
     Active Substance: CASIRIVIMAB\IMDEVIMAB
     Dates: start: 20211007, end: 20211007

REACTIONS (5)
  - Lip swelling [None]
  - Feeling hot [None]
  - Cough [None]
  - Throat irritation [None]
  - Infusion related reaction [None]

NARRATIVE: CASE EVENT DATE: 20211007
